FAERS Safety Report 15156117 (Version 1)
Quarter: 2018Q3

REPORT INFORMATION
  Report Type: Spontaneous
  Country: US (occurrence: US)
  Receive Date: 20180717
  Receipt Date: 20180717
  Transmission Date: 20181010
  Serious: No
  Sender: FDA-Public Use
  Company Number: US-GE HEALTHCARE LIFE SCIENCES-2018CSU002735

PATIENT
  Age: 74 Year
  Sex: Female
  Weight: 63.49 kg

DRUGS (5)
  1. COZAAR [Concomitant]
     Active Substance: LOSARTAN POTASSIUM
  2. ATIVAN [Concomitant]
     Active Substance: LORAZEPAM
  3. ZOCOR [Concomitant]
     Active Substance: SIMVASTATIN
  4. DATSCAN [Suspect]
     Active Substance: IODINE\IOFLUPANE I-123
     Indication: PARKINSON^S DISEASE
     Dosage: UNK UNK, SINGLE
     Route: 065
  5. EFFEXOR [Concomitant]
     Active Substance: VENLAFAXINE HYDROCHLORIDE

REACTIONS (2)
  - Drug ineffective [Recovered/Resolved]
  - No adverse event [Recovered/Resolved]

NARRATIVE: CASE EVENT DATE: 20180712
